FAERS Safety Report 12771275 (Version 1)
Quarter: 2016Q3

REPORT INFORMATION
  Report Type: Spontaneous
  Country: NL (occurrence: NL)
  Receive Date: 20160922
  Receipt Date: 20160922
  Transmission Date: 20161109
  Serious: Yes (Hospitalization)
  Sender: FDA-Public Use
  Company Number: NL-SA-2016SA170351

PATIENT
  Age: 74 Year
  Sex: Male
  Weight: 98 kg

DRUGS (8)
  1. ZOLPIDEM [Suspect]
     Active Substance: ZOLPIDEM\ZOLPIDEM TARTRATE
     Route: 048
     Dates: start: 2010
  2. ENZALUTAMIDE [Interacting]
     Active Substance: ENZALUTAMIDE
     Indication: PROSTATE CANCER
     Dosage: : RESTART ENZALUTAMIDE 50%
     Route: 048
     Dates: start: 20160707
  3. NIFEDIPINE. [Interacting]
     Active Substance: NIFEDIPINE
     Route: 048
     Dates: start: 2010
  4. GLICLAZIDE [Suspect]
     Active Substance: GLICLAZIDE
     Route: 048
     Dates: start: 2010
  5. ELIGARD [Concomitant]
     Active Substance: LEUPROLIDE ACETATE
     Route: 058
  6. METFORMIN HYDROCHLORIDE. [Concomitant]
     Active Substance: METFORMIN HYDROCHLORIDE
     Dosage: DOSAGE UNIT:- 2 DD 1
     Route: 048
  7. ENZALUTAMIDE [Interacting]
     Active Substance: ENZALUTAMIDE
     Indication: PROSTATE CANCER
     Dosage: DOSAGE UNIT:- 1 DD 4 STUK(S)
     Route: 048
     Dates: start: 201605
  8. ENZALUTAMIDE [Interacting]
     Active Substance: ENZALUTAMIDE
     Indication: PROSTATE CANCER
     Route: 048

REACTIONS (4)
  - Drug interaction [Unknown]
  - Arthritis [Recovering/Resolving]
  - Palmar-plantar erythrodysaesthesia syndrome [Recovering/Resolving]
  - Erythema nodosum [Recovering/Resolving]

NARRATIVE: CASE EVENT DATE: 2016
